FAERS Safety Report 9742084 (Version 1)
Quarter: 2013Q4

REPORT INFORMATION
  Report Type: Spontaneous
  Country: US (occurrence: US)
  Receive Date: 20131210
  Receipt Date: 20131210
  Transmission Date: 20140711
  Serious: No
  Sender: FDA-Public Use
  Company Number: 2012SP003768

PATIENT
  Sex: Male

DRUGS (4)
  1. FLUOROURACIL [Suspect]
     Indication: PANCREATIC CARCINOMA
     Dates: start: 2012
  2. IRINOTECAN HCL [Suspect]
     Indication: PANCREATIC CARCINOMA
     Dates: start: 2012
  3. ELOXATIN [Suspect]
     Indication: PANCREATIC CARCINOMA
     Dates: start: 2012
  4. FOLINIC ACID [Suspect]
     Indication: PANCREATIC CARCINOMA

REACTIONS (1)
  - Tongue disorder [Recovered/Resolved]
